FAERS Safety Report 11118632 (Version 1)
Quarter: 2015Q2

REPORT INFORMATION
  Report Type: Spontaneous
  Country: FR (occurrence: FR)
  Receive Date: 20150518
  Receipt Date: 20150518
  Transmission Date: 20150821
  Serious: Yes (Hospitalization)
  Sender: FDA-Public Use
  Company Number: FR-TEVA-562656ISR

PATIENT
  Age: 24 Year
  Sex: Male

DRUGS (6)
  1. AMOXICILLINE [Suspect]
     Active Substance: AMOXICILLIN
     Indication: SUICIDE ATTEMPT
     Dosage: UNIQUE DOSE (4 BOXES)
     Route: 048
     Dates: start: 20150318, end: 20150318
  2. DOLIPRANE [Suspect]
     Active Substance: ACETAMINOPHEN
     Indication: SUICIDE ATTEMPT
     Dosage: UNIQUE DOSE (2 BOXES)
     Route: 048
     Dates: start: 20150318, end: 20150318
  3. SPASFON [Suspect]
     Active Substance: PHLOROGLUCINOL
     Indication: SUICIDE ATTEMPT
     Dosage: UNIQUE DOSE (1 BOX)
     Route: 048
     Dates: start: 20150318, end: 20150318
  4. DAFALGAN CODEINE [Suspect]
     Active Substance: ACETAMINOPHEN\CODEINE PHOSPHATE
     Indication: SUICIDE ATTEMPT
     Dosage: UNIQUE DOSE (2 BOXES)
     Route: 048
     Dates: start: 20150318, end: 20150318
  5. IBUPROFENE [Suspect]
     Active Substance: IBUPROFEN
     Indication: SUICIDE ATTEMPT
     Dosage: UNIQUE DOSE (1 BOX)
     Route: 048
     Dates: start: 20150318, end: 20150318
  6. MAXILASE [Suspect]
     Active Substance: PANCRELIPASE
     Indication: SUICIDE ATTEMPT
     Dosage: UNIQUE DOSE
     Route: 048
     Dates: start: 20150318, end: 20150318

REACTIONS (3)
  - Nausea [Recovered/Resolved]
  - Toxicity to various agents [Recovered/Resolved]
  - Vomiting [Recovered/Resolved]

NARRATIVE: CASE EVENT DATE: 20150318
